FAERS Safety Report 6749924-0 (Version None)
Quarter: 2010Q2

REPORT INFORMATION
  Report Type: 
  Country: None (occurrence: None)
  Receive Date: 20100601
  Receipt Date: 20100527
  Transmission Date: 20101027
  Serious: No
  Sender: FDA-Public Use
  Company Number: US-JNJFOC-20100210555

PATIENT
  Sex: Female
  Weight: 56.7 kg

DRUGS (5)
  1. FENTANYL CITRATE [Suspect]
     Indication: PAIN IN EXTREMITY
     Route: 062
  2. FENTANYL CITRATE [Suspect]
     Indication: BACK PAIN
     Route: 062
  3. LORTAB [Concomitant]
     Indication: BREAKTHROUGH PAIN
     Dosage: 10 MG/50 MG
     Route: 048
  4. ROBAXIN [Concomitant]
     Indication: MUSCLE SPASMS
     Route: 048
  5. UNKNOWN MEDICATION [Concomitant]

REACTIONS (3)
  - APPLICATION SITE ERYTHEMA [None]
  - PRODUCT ADHESION ISSUE [None]
  - WRONG TECHNIQUE IN DRUG USAGE PROCESS [None]
